FAERS Safety Report 5177107-7 (Version None)
Quarter: 2006Q4

REPORT INFORMATION
  Report Type: 
  Country: None (occurrence: None)
  Receive Date: 20061218
  Receipt Date: 20061120
  Transmission Date: 20070319
  Serious: Yes (Death)
  Sender: FDA-Public Use
  Company Number: JP-BAYER-200615872GDS

PATIENT
  Age: 58 Year
  Sex: Male

DRUGS (2)
  1. CIPROFLOXACIN [Suspect]
     Indication: PNEUMONIA LEGIONELLA
     Dosage: UNIT DOSE: 300 MG
     Route: 042
     Dates: start: 20060717
  2. AMPICILLIN AND SULBACTAM [Concomitant]
     Indication: PNEUMONIA
     Route: 065
     Dates: start: 20060716, end: 20060717

REACTIONS (4)
  - MUSCULAR WEAKNESS [None]
  - PNEUMONIA LEGIONELLA [None]
  - PYREXIA [None]
  - RENAL FAILURE [None]
